FAERS Safety Report 21678298 (Version 1)
Quarter: 2022Q4

REPORT INFORMATION
  Report Type: Spontaneous
  Country: FR (occurrence: FR)
  Receive Date: 20221203
  Receipt Date: 20221203
  Transmission Date: 20230112
  Serious: Yes (Hospitalization)
  Sender: FDA-Public Use
  Company Number: None

PATIENT
  Age: 20 Year
  Sex: Female
  Weight: 61 kg

DRUGS (3)
  1. PREGABALIN [Suspect]
     Active Substance: PREGABALIN
     Indication: Intentional overdose
     Dosage: 100 MG X12 , UNIT DOSE : 12 DF , DURATION : 1 DAY
     Dates: start: 20221008, end: 20221008
  2. LOXAPINE [Suspect]
     Active Substance: LOXAPINE
     Indication: Intentional overdose
     Dosage: FORM STRENGTH : 25 MG , UNIT DOSE : 30 DF , DURATION : 1 DAY
     Dates: start: 20221008, end: 20221008
  3. OXAZEPAM [Suspect]
     Active Substance: OXAZEPAM
     Indication: Intentional overdose
     Dosage: SCORED TABLET , FORM STRENGTH : 50 MG , UNIT DOSE : 20 DF , DURATION : 1 DAY
     Dates: start: 20221008, end: 20221008

REACTIONS (4)
  - Miosis [Recovered/Resolved]
  - Coma [Recovered/Resolved]
  - Poisoning deliberate [Recovered/Resolved]
  - Electrocardiogram QT prolonged [Recovered/Resolved]

NARRATIVE: CASE EVENT DATE: 20221008
